FAERS Safety Report 9958785 (Version 2)
Quarter: 2014Q1

REPORT INFORMATION
  Report Type: Report from Study
  Country: US (occurrence: US)
  Receive Date: 20140305
  Receipt Date: 20140305
  Transmission Date: 20141002
  Serious: Yes (Other)
  Sender: FDA-Public Use
  Company Number: US-ABBVIE-13P-163-1080945-00

PATIENT
  Age: 39 Year
  Sex: Male

DRUGS (7)
  1. HUMIRA [Suspect]
     Indication: COLITIS ULCERATIVE
     Dates: start: 20130219, end: 20130219
  2. HUMIRA [Suspect]
     Dates: start: 20130305
  3. HUMIRA [Suspect]
     Dates: end: 20130418
  4. HUMIRA [Suspect]
     Dates: start: 20130418, end: 20130418
  5. HUMIRA [Suspect]
     Dates: start: 20130425, end: 20130425
  6. HUMIRA [Suspect]
  7. NOVO-PREDNISONE [Concomitant]
     Indication: PRODUCT USED FOR UNKNOWN INDICATION
     Dosage: 15MG DAILY IS REDUCING BY 5MG WEEKLY

REACTIONS (8)
  - Fall [Unknown]
  - Spinal fracture [Unknown]
  - Pulmonary embolism [Unknown]
  - Rectal haemorrhage [Not Recovered/Not Resolved]
  - Diarrhoea [Not Recovered/Not Resolved]
  - Drug ineffective [Not Recovered/Not Resolved]
  - Paraesthesia [Unknown]
  - Abasia [Unknown]
